FAERS Safety Report 6632283-1 (Version None)
Quarter: 2010Q1

REPORT INFORMATION
  Report Type: 
  Country: None (occurrence: None)
  Receive Date: 20100312
  Receipt Date: 20100311
  Transmission Date: 20100710
  Serious: Yes (Hospitalization)
  Sender: FDA-Public Use
  Company Number: A0839764B

PATIENT
  Age: 63 Year
  Sex: Female
  Weight: 56 kg

DRUGS (12)
  1. MELPHALAN HYDROCHLORIDE [Suspect]
     Indication: AMYLOIDOSIS
     Dates: start: 20091228, end: 20091229
  2. VELCADE [Suspect]
     Indication: AMYLOIDOSIS
  3. DEXAMETHASONE [Suspect]
     Indication: AMYLOIDOSIS
  4. STEM CELL TRANSPLANT [Concomitant]
  5. DIOVAN [Concomitant]
  6. FUROSEMIDE [Concomitant]
  7. POTASSIUM CHLORIDE [Concomitant]
  8. METOPROLOL TARTRATE [Concomitant]
  9. CRESTOR [Concomitant]
  10. VITAMIN D [Concomitant]
  11. CALTRATE [Concomitant]
  12. ALDACTONE [Concomitant]

REACTIONS (2)
  - CARDIAC FAILURE CONGESTIVE [None]
  - DYSPNOEA [None]
